FAERS Safety Report 20340172 (Version 2)
Quarter: 2022Q1

REPORT INFORMATION
  Report Type: Spontaneous
  Country: TR (occurrence: TR)
  Receive Date: 20220117
  Receipt Date: 20220128
  Transmission Date: 20220423
  Serious: No
  Sender: FDA-Public Use
  Company Number: TR-LUPIN PHARMACEUTICALS INC.-2022-00189

PATIENT
  Age: 48 Year
  Sex: Male

DRUGS (20)
  1. QUETIAPINE FUMARATE [Suspect]
     Active Substance: QUETIAPINE FUMARATE
     Indication: Bipolar disorder
     Dosage: 600 MILLIGRAM
     Route: 065
  2. QUETIAPINE FUMARATE [Suspect]
     Active Substance: QUETIAPINE FUMARATE
     Indication: Mania
     Dosage: 200 MILLIGRAM
     Route: 065
  3. QUETIAPINE FUMARATE [Suspect]
     Active Substance: QUETIAPINE FUMARATE
     Dosage: 400 MILLIGRAM
     Route: 065
  4. OLANZAPINE [Suspect]
     Active Substance: OLANZAPINE
     Indication: Bipolar disorder
     Dosage: UNK
     Route: 065
  5. OLANZAPINE [Suspect]
     Active Substance: OLANZAPINE
     Indication: Mania
  6. VALPROIC ACID [Suspect]
     Active Substance: VALPROIC ACID
     Indication: Bipolar disorder
     Dosage: 1750 MILLIGRAM
     Route: 065
  7. VALPROIC ACID [Suspect]
     Active Substance: VALPROIC ACID
     Indication: Mania
     Dosage: 2000 MILLIGRAM
     Route: 065
  8. PALIPERIDONE [Suspect]
     Active Substance: PALIPERIDONE
     Indication: Bipolar disorder
     Dosage: 6 MILLIGRAM, QD
     Route: 065
  9. PALIPERIDONE [Suspect]
     Active Substance: PALIPERIDONE
     Indication: Mania
     Dosage: 9 MILLIGRAM, QD
     Route: 065
  10. AMISULPRIDE [Suspect]
     Active Substance: AMISULPRIDE
     Indication: Bipolar disorder
     Dosage: 800 MILLIGRAM, QD
     Route: 065
  11. AMISULPRIDE [Suspect]
     Active Substance: AMISULPRIDE
     Indication: Mania
  12. ZUCLOPENTHIXOL ACETATE [Suspect]
     Active Substance: ZUCLOPENTHIXOL ACETATE
     Indication: Bipolar disorder
     Dosage: UNK, FOUR DOSES OF ZUCLOPENTHIXOL ACETATE WITH 3-DAY INTERVALS
     Route: 065
  13. ZUCLOPENTHIXOL ACETATE [Suspect]
     Active Substance: ZUCLOPENTHIXOL ACETATE
     Indication: Mania
     Dosage: FOUR DOSES OF ZUCLOPENTHIXOL ACETATE WITH 3-DAY INTERVALS
     Route: 065
  14. BIPERIDEN [Concomitant]
     Active Substance: BIPERIDEN
     Indication: Prophylaxis
     Dosage: 2 MILLIGRAM
     Route: 065
  15. LITHIUM [Concomitant]
     Active Substance: LITHIUM
     Indication: Bipolar disorder
     Dosage: UNK
     Route: 065
  16. LITHIUM [Concomitant]
     Active Substance: LITHIUM
     Indication: Mania
  17. RISPERIDONE [Concomitant]
     Active Substance: RISPERIDONE
     Indication: Bipolar disorder
     Dosage: UNK
     Route: 065
  18. RISPERIDONE [Concomitant]
     Active Substance: RISPERIDONE
     Indication: Mania
  19. HALOPERIDOL [Concomitant]
     Active Substance: HALOPERIDOL
     Indication: Bipolar disorder
     Dosage: UNK
     Route: 065
  20. HALOPERIDOL [Concomitant]
     Active Substance: HALOPERIDOL
     Indication: Mania

REACTIONS (3)
  - Hepatic enzyme increased [Recovered/Resolved]
  - Oedema peripheral [Recovered/Resolved]
  - Hyponatraemia [Recovered/Resolved]
